FAERS Safety Report 10774251 (Version 2)
Quarter: 2015Q2

REPORT INFORMATION
  Report Type: Spontaneous
  Country: AR (occurrence: AR)
  Receive Date: 20150209
  Receipt Date: 20150520
  Transmission Date: 20150821
  Serious: Yes (Hospitalization)
  Sender: FDA-Public Use
  Company Number: AR-AMGEN-ARGSP2014094200

PATIENT
  Age: 45 Year
  Sex: Female

DRUGS (2)
  1. ENBREL [Suspect]
     Active Substance: ETANERCEPT
     Indication: PSORIASIS
     Dosage: 50 MG, WEEKLY
     Route: 065
     Dates: start: 201208
  2. METILPRESS [Concomitant]
     Dosage: UNK

REACTIONS (5)
  - Pain in extremity [Recovering/Resolving]
  - Musculoskeletal pain [Recovering/Resolving]
  - Nail disorder [Unknown]
  - Stress [Unknown]
  - Pharyngitis [Unknown]
